FAERS Safety Report 10574169 (Version 1)
Quarter: 2014Q4

REPORT INFORMATION
  Report Type: Spontaneous
  Country: FR (occurrence: FR)
  Receive Date: 20141110
  Receipt Date: 20141110
  Transmission Date: 20150529
  Serious: Yes (Other)
  Sender: FDA-Public Use
  Company Number: FR-BIAL, PORTELA + CA S.A.-BIAL-02683

PATIENT
  Age: 50 Year
  Sex: Male
  Weight: 130 kg

DRUGS (4)
  1. ANTIHYPERTENSIVES [Concomitant]
     Active Substance: UNSPECIFIED INGREDIENT
     Indication: BLOOD PRESSURE INCREASED
  2. LIPID MODIFYING AGENTS [Concomitant]
     Indication: HYPERCHOLESTEROLAEMIA
  3. ZEBINIX (ESLICARBAZEPINE ACETATE) [Suspect]
     Active Substance: ESLICARBAZEPINE ACETATE
     Indication: PAIN IN EXTREMITY
     Dosage: 1200 MG, UNK
     Route: 048
     Dates: start: 2014
  4. MYCOPHENOLATE MOFETIL. [Suspect]
     Active Substance: MYCOPHENOLATE MOFETIL
     Indication: MULTIPLE SCLEROSIS

REACTIONS (2)
  - Bradycardia [Unknown]
  - Product use issue [None]

NARRATIVE: CASE EVENT DATE: 201410
